FAERS Safety Report 6696282-6 (Version None)
Quarter: 2010Q2

REPORT INFORMATION
  Report Type: 
  Country: None (occurrence: None)
  Receive Date: 20100419
  Receipt Date: 20090723
  Transmission Date: 20101027
  Serious: No
  Sender: FDA-Public Use
  Company Number: 2009-00418

PATIENT
  Age: 46 Year
  Sex: Female
  Weight: 76.2043 kg

DRUGS (2)
  1. ZICAM COLD REMEDY GEL SWABS [Suspect]
     Dosage: BID -2 YEARS, PAST 2 WINTERS - RECENT
  2. ZICAM COLD REMEDY GEL SWABS [Suspect]
     Dosage: BID - 2 YEARS, PAST 2 WINTERS - RECENT

REACTIONS (1)
  - ANOSMIA [None]
